FAERS Safety Report 20450276 (Version 2)
Quarter: 2022Q1

REPORT INFORMATION
  Report Type: Spontaneous
  Country: AU (occurrence: AU)
  Receive Date: 20220209
  Receipt Date: 20220221
  Transmission Date: 20220424
  Serious: Yes (Hospitalization, Other)
  Sender: FDA-Public Use
  Company Number: AU-BAUSCH-BL-2022-003658

PATIENT
  Age: 47 Year
  Sex: Female

DRUGS (8)
  1. PREDNISOLONE [Suspect]
     Active Substance: PREDNISOLONE
     Indication: Product used for unknown indication
     Route: 065
  2. HYDROXYCHLOROQUINE DIPHOSPHATE [Suspect]
     Active Substance: HYDROXYCHLOROQUINE DIPHOSPHATE
     Indication: Product used for unknown indication
     Route: 065
  3. OLUMIANT [Suspect]
     Active Substance: BARICITINIB
     Indication: Product used for unknown indication
     Route: 065
  4. METHOTREXATE [Concomitant]
     Active Substance: METHOTREXATE
     Indication: Product used for unknown indication
  5. APO-FRUSEMIDE [Concomitant]
     Indication: Product used for unknown indication
  6. PALEXIA [Concomitant]
     Active Substance: TAPENTADOL HYDROCHLORIDE
     Indication: Product used for unknown indication
  7. FOLIC ACID [Concomitant]
     Active Substance: FOLIC ACID
     Indication: Product used for unknown indication
  8. LEFLUNOMIDE [Concomitant]
     Active Substance: LEFLUNOMIDE
     Indication: Product used for unknown indication

REACTIONS (12)
  - Diarrhoea haemorrhagic [Unknown]
  - Electrocardiogram QRS complex shortened [Unknown]
  - Abdominal pain [Unknown]
  - Contusion [Unknown]
  - Epistaxis [Unknown]
  - Gastrointestinal tract irritation [Unknown]
  - Gingival bleeding [Unknown]
  - Supraventricular tachycardia [Unknown]
  - Vertigo [Unknown]
  - Vomiting [Unknown]
  - Adverse drug reaction [Unknown]
  - Vision blurred [Unknown]

NARRATIVE: CASE EVENT DATE: 20210302
